FAERS Safety Report 7287753-2 (Version None)
Quarter: 2011Q1

REPORT INFORMATION
  Report Type: 
  Country: None (occurrence: None)
  Receive Date: 20110211
  Receipt Date: 20110128
  Transmission Date: 20110831
  Serious: Yes (Hospitalization, Other)
  Sender: FDA-Public Use
  Company Number: BE-BAYER-201042958GPV

PATIENT
  Sex: Male
  Weight: 62 kg

DRUGS (3)
  1. NEXAVAR [Suspect]
     Indication: RENAL CELL CARCINOMA
     Dosage: 400 MG, QD
     Route: 048
     Dates: start: 20100906, end: 20110101
  2. ANTIHYPERTENSIVES [Concomitant]
     Indication: BLOOD PRESSURE INCREASED
  3. KENACORT [Concomitant]
     Indication: BACK PAIN
     Dates: start: 20100916

REACTIONS (10)
  - ABDOMINAL PAIN [None]
  - CHOLELITHIASIS [None]
  - COUGH [None]
  - GALLBLADDER DISORDER [None]
  - BLOOD PRESSURE INCREASED [None]
  - NAUSEA [None]
  - NOCTURIA [None]
  - WEIGHT DECREASED [None]
  - HAEMORRHOIDS [None]
  - CHOLECYSTITIS [None]
